FAERS Safety Report 24026094 (Version 1)
Quarter: 2024Q2

REPORT INFORMATION
  Report Type: Spontaneous
  Country: US (occurrence: US)
  Receive Date: 20240628
  Receipt Date: 20240628
  Transmission Date: 20240716
  Serious: No
  Sender: FDA-Public Use
  Company Number: US-AUROBINDO-AUR-APL-2023-057073

PATIENT
  Age: 76 Year
  Sex: Female

DRUGS (2)
  1. AZELASTINE HYDROCHLORIDE [Suspect]
     Active Substance: AZELASTINE HYDROCHLORIDE
     Indication: Hypersensitivity
     Dosage: 2 SPRAYS IN EACH NOSTRIL 2 TIMES A DAY
     Route: 065
     Dates: start: 20230727
  2. AZELASTINE HYDROCHLORIDE [Suspect]
     Active Substance: AZELASTINE HYDROCHLORIDE
     Indication: Rhinorrhoea

REACTIONS (4)
  - Device malfunction [Unknown]
  - Device delivery system issue [Unknown]
  - Product quality issue [Unknown]
  - Drug ineffective [Unknown]
